FAERS Safety Report 4286088-X (Version None)
Quarter: 2004Q1

REPORT INFORMATION
  Report Type: 
  Country: None (occurrence: None)
  Receive Date: 20040114
  Receipt Date: 20030321
  Transmission Date: 20041129
  Serious: Yes (Hospitalization)
  Sender: FDA-Public Use
  Company Number: 334562

PATIENT
  Sex: Female

DRUGS (1)
  1. ROCEPHIN [Suspect]
     Indication: UNEVALUABLE EVENT
     Dosage: 2 GRAM  1 PER 2 HOUR
     Dates: start: 20030320, end: 20030321

REACTIONS (3)
  - MEDICATION ERROR [None]
  - NO ADVERSE DRUG EFFECT [None]
  - OVERDOSE [None]
